FAERS Safety Report 5832166-0 (Version None)
Quarter: 2008Q3

REPORT INFORMATION
  Report Type: 
  Country: None (occurrence: None)
  Receive Date: 20080731
  Receipt Date: 20080731
  Transmission Date: 20090109
  Serious: Yes (Life-Threatening)
  Sender: FDA-Public Use
  Company Number: None

PATIENT
  Age: 62 Year
  Sex: Male
  Weight: 77 kg

DRUGS (27)
  1. LIDOCAINE 2% [Suspect]
     Indication: BRONCHOSCOPY
     Dosage: SMALL AMOUNT ONCE TOP
     Route: 061
     Dates: start: 20070724, end: 20070724
  2. DOCUSATE SODIUM [Concomitant]
  3. HEPARIN [Concomitant]
  4. THIAMINE [Concomitant]
  5. OSCAL+D [Concomitant]
  6. BACITRACIN [Concomitant]
  7. FUROSEMIDE [Concomitant]
  8. VENLAFAXINE HCL [Concomitant]
  9. CYCLOSPORINE [Concomitant]
  10. GANCICLOVIR [Concomitant]
  11. AZATHIAPRINE [Concomitant]
  12. BACTRIM [Concomitant]
  13. ZYPREXA [Concomitant]
  14. MYCELEX [Concomitant]
  15. FERROUS SULFATE TAB [Concomitant]
  16. FLOMAX [Concomitant]
  17. PROSCAR [Concomitant]
  18. PREDNISONE [Concomitant]
  19. NEXIUM [Concomitant]
  20. XANAX [Concomitant]
  21. ZOSYN [Concomitant]
  22. LEVAQUIN [Concomitant]
  23. VANCOMYCIN HCL [Concomitant]
  24. TYLENOL [Concomitant]
  25. LUNESTA [Concomitant]
  26. PHENERGAN HCL [Concomitant]
  27. MORPHINE [Concomitant]

REACTIONS (1)
  - HYPOXIA [None]
